FAERS Safety Report 10759194 (Version 1)
Quarter: 2015Q1

REPORT INFORMATION
  Report Type: Spontaneous
  Country: US (occurrence: None)
  Receive Date: 20150126
  Receipt Date: 20150126
  Transmission Date: 20150721
  Serious: Yes (Life-Threatening)
  Sender: FDA-Public Use
  Company Number: MC201100101

PATIENT
  Age: 61 Year
  Sex: Male
  Weight: 115 kg

DRUGS (18)
  1. CLOPIDOGREL [Concomitant]
     Active Substance: CLOPIDOGREL BISULFATE
  2. CENTRUM (CENTRUM /02217401/) (ERGOCALCIFEROL, ASCORBIC ACID, PYRIDOXINE HYDROCHLORIDE, BIOTIN, FOLIC ACID, COLECALCIFEROL, CYANOCOBALAMIN, PANTOTHENIC ACID, RIBOFLAVIN, NICOTINAMIDE, RETINOL ACETATE, CALCIUM PANTOTHENATE, FERROUS FUMARATE, THIAMINE MONONITRATE, MAGNESIUM OXIDE, CUPRIC OXIDE, IRON, MAGNESIUM, MANGANESE, POTASSIUM, COPPER, ZINC, CALCIUM, IODINE, POTASSIUM IODIDE, DL-ALPHA TOCOPHERYL ACETATE, PHOSPHORUS, ZINC SULFATE, POTASSIUM SULFATE, MANGANESE SULFATE) [Concomitant]
  3. NITROGLYCERIN (GLYCERYL TRINITRATE) [Concomitant]
     Active Substance: NITROGLYCERIN
  4. RANITIDINE [Concomitant]
     Active Substance: RANITIDINE\RANITIDINE HYDROCHLORIDE
  5. CANGRELOR [Suspect]
     Active Substance: CANGRELOR
     Indication: PERCUTANEOUS CORONARY INTERVENTION
     Dosage: 4 CAPSULES, LOADING DOSE
     Route: 048
     Dates: start: 20110309, end: 20110309
  6. ASPIRIN (ACETYLSALICYCLIC ACID) [Concomitant]
     Active Substance: ASPIRIN
  7. NEBIVOLOL [Concomitant]
     Active Substance: NEBIVOLOL
  8. PRAVASTATIN [Concomitant]
     Active Substance: PRAVASTATIN\PRAVASTATIN SODIUM
  9. LISINOPRIL. [Concomitant]
     Active Substance: LISINOPRIL
  10. SAW PALMETTO (SERENOA REPENS) [Concomitant]
     Active Substance: SAW PALMETTO
  11. FISH OIL [Concomitant]
     Active Substance: FISH OIL
  12. ISOVUE 370 [Suspect]
     Active Substance: IOPAMIDOL
     Indication: ANGIOGRAM
     Dosage: 386 CC
     Route: 022
     Dates: start: 20110309, end: 20110309
  13. FLUOXETINE [Concomitant]
     Active Substance: FLUOXETINE\FLUOXETINE HYDROCHLORIDE
  14. ANGIOMAX [Suspect]
     Active Substance: BIVALIRUDIN
     Indication: ANTICOAGULANT THERAPY
     Route: 040
     Dates: start: 20110309, end: 20110309
  15. VITAMIN E [Concomitant]
     Active Substance: .ALPHA.-TOCOPHEROL
  16. HEPARIN [Concomitant]
     Active Substance: HEPARIN SODIUM
  17. FOLIC ACID. [Concomitant]
     Active Substance: FOLIC ACID
  18. HYDROCHLOROTHIAZIDE. [Concomitant]
     Active Substance: HYDROCHLOROTHIAZIDE

REACTIONS (1)
  - Anaphylactic reaction [None]

NARRATIVE: CASE EVENT DATE: 20110309
